FAERS Safety Report 9259185 (Version 1)
Quarter: 2013Q2

REPORT INFORMATION
  Report Type: Report from Study
  Country: JP (occurrence: JP)
  Receive Date: 20130426
  Receipt Date: 20130426
  Transmission Date: 20140414
  Serious: Yes (Hospitalization)
  Sender: FDA-Public Use
  Company Number: JP-SANOFI-AVENTIS-2013SA042771

PATIENT
  Age: 68 Year
  Sex: Male
  Weight: 71.2 kg

DRUGS (6)
  1. PLAVIX [Suspect]
     Indication: ISCHAEMIC STROKE
     Route: 048
     Dates: start: 20120221, end: 20121006
  2. PLAVIX [Suspect]
     Indication: ISCHAEMIC STROKE
     Route: 048
     Dates: start: 20121020
  3. ADALAT CR [Concomitant]
     Dates: start: 2001
  4. MICARDIS [Concomitant]
     Dates: start: 2001
  5. SALOBEL [Concomitant]
     Dates: start: 20120124
  6. LIPITOR [Concomitant]
     Dates: start: 20120124

REACTIONS (1)
  - Synovial cyst [Recovered/Resolved]
